FAERS Safety Report 8139355-3 (Version None)
Quarter: 2012Q1

REPORT INFORMATION
  Report Type: 
  Country: None (occurrence: None)
  Receive Date: 20120215
  Receipt Date: 20120210
  Transmission Date: 20120608
  Serious: Yes (Death, Other)
  Sender: FDA-Public Use
  Company Number: US-ELI_LILLY_AND_COMPANY-US201201006269

PATIENT
  Sex: Male

DRUGS (2)
  1. ALIMTA [Suspect]
     Indication: LUNG NEOPLASM MALIGNANT
     Dosage: 800 MG, UNKNOWN
     Dates: start: 20110105, end: 20110329
  2. ERLOTINIB HYDROCHLORIDE [Concomitant]
     Dosage: UNK, UNKNOWN

REACTIONS (2)
  - NEOPLASM PROGRESSION [None]
  - HOSPICE CARE [None]
